FAERS Safety Report 9830369 (Version 3)
Quarter: 2014Q1

REPORT INFORMATION
  Report Type: Spontaneous
  Country: PT (occurrence: PT)
  Receive Date: 20140120
  Receipt Date: 20140203
  Transmission Date: 20141002
  Serious: Yes (Other)
  Sender: FDA-Public Use
  Company Number: PT-JNJFOC-20140105347

PATIENT
  Age: 45 Year
  Sex: Male

DRUGS (3)
  1. STELARA [Suspect]
     Indication: PSORIATIC ARTHROPATHY
     Route: 058
     Dates: start: 201309
  2. STELARA [Suspect]
     Indication: PSORIASIS
     Route: 058
     Dates: start: 201309
  3. CHAMPIX [Concomitant]
     Route: 065

REACTIONS (4)
  - Hypothyroidism [Unknown]
  - Autoimmune thyroiditis [Unknown]
  - Dysgeusia [Unknown]
  - Paraesthesia oral [Unknown]
